FAERS Safety Report 7505243-6 (Version None)
Quarter: 2011Q2

REPORT INFORMATION
  Report Type: 
  Country: None (occurrence: None)
  Receive Date: 20110526
  Receipt Date: 20110521
  Transmission Date: 20111010
  Serious: No
  Sender: FDA-Public Use
  Company Number: US-PFIZER INC-2011111239

PATIENT
  Sex: Male
  Weight: 48.98 kg

DRUGS (1)
  1. VIAGRA [Suspect]
     Indication: ERECTILE DYSFUNCTION
     Dosage: 25 MG, DAILY
     Route: 048
     Dates: start: 20110201

REACTIONS (1)
  - DRUG INEFFECTIVE [None]
